FAERS Safety Report 15111962 (Version 3)
Quarter: 2018Q3

REPORT INFORMATION
  Report Type: Spontaneous
  Country: FI (occurrence: FI)
  Receive Date: 20180705
  Receipt Date: 20180817
  Transmission Date: 20181010
  Serious: Yes (Other)
  Sender: FDA-Public Use
  Company Number: FI-JNJFOC-20180638328

PATIENT
  Age: 53 Year
  Sex: Female

DRUGS (3)
  1. SPORANOX [Suspect]
     Active Substance: ITRACONAZOLE
     Indication: FUNGAL INFECTION
     Route: 048
     Dates: start: 20180617, end: 201807
  2. CIPROFLOXACIN. [Interacting]
     Active Substance: CIPROFLOXACIN
     Indication: PRODUCT USED FOR UNKNOWN INDICATION
     Route: 065
     Dates: end: 20180624
  3. FLAGYL [Concomitant]
     Active Substance: METRONIDAZOLE\METRONIDAZOLE HYDROCHLORIDE
     Indication: PRODUCT USED FOR UNKNOWN INDICATION
     Route: 065
     Dates: start: 20180622

REACTIONS (15)
  - Dry skin [Not Recovered/Not Resolved]
  - Skin ulcer [Not Recovered/Not Resolved]
  - Nausea [Not Recovered/Not Resolved]
  - Drug interaction [Unknown]
  - Suicidal ideation [Not Recovered/Not Resolved]
  - Muscular weakness [Unknown]
  - Anxiety [Not Recovered/Not Resolved]
  - Scar [Unknown]
  - Insomnia [Not Recovered/Not Resolved]
  - Erythema [Unknown]
  - Skin burning sensation [Unknown]
  - Drug ineffective [Unknown]
  - Psychomotor hyperactivity [Not Recovered/Not Resolved]
  - Headache [Unknown]
  - Swelling face [Unknown]

NARRATIVE: CASE EVENT DATE: 201806
